FAERS Safety Report 5161177-6 (Version None)
Quarter: 2006Q4

REPORT INFORMATION
  Report Type: 
  Country: None (occurrence: None)
  Receive Date: 20061130
  Receipt Date: 20060727
  Transmission Date: 20070319
  Serious: Yes (Other)
  Sender: FDA-Public Use
  Company Number: US-BRISTOL-MYERS SQUIBB COMPANY-13459433

PATIENT
  Age: 48 Year
  Sex: Male

DRUGS (3)
  1. ERBITUX [Suspect]
     Indication: COLON CANCER
     Route: 042
     Dates: start: 20060721, end: 20060721
  2. BENADRYL [Concomitant]
     Indication: PREMEDICATION
     Dosage: THE PATIENT RECEIVED 25MG IVP POST WHEEZING REACTION
     Route: 042
  3. DECADRON [Concomitant]
     Indication: PREMEDICATION

REACTIONS (1)
  - WHEEZING [None]
